FAERS Safety Report 14502439 (Version 2)
Quarter: 2018Q1

REPORT INFORMATION
  Report Type: Report from Study
  Country: None (occurrence: TW)
  Receive Date: 20180208
  Receipt Date: 20180305
  Transmission Date: 20180509
  Serious: Yes (Hospitalization, Other)
  Sender: FDA-Public Use
  Company Number: TW-ABBVIE-18K-153-2247015-00

PATIENT
  Age: 62 Year
  Sex: Female
  Weight: 60 kg

DRUGS (1)
  1. HUMIRA [Suspect]
     Active Substance: ADALIMUMAB
     Indication: RHEUMATOID ARTHRITIS
     Route: 058
     Dates: start: 20151218, end: 20171220

REACTIONS (10)
  - Choking [Unknown]
  - Ammonia increased [Unknown]
  - Lung infiltration [Not Recovered/Not Resolved]
  - Pneumonia [Not Recovered/Not Resolved]
  - Red blood cell sedimentation rate increased [Unknown]
  - Haemoglobin decreased [Unknown]
  - C-reactive protein increased [Not Recovered/Not Resolved]
  - White blood cell count increased [Not Recovered/Not Resolved]
  - Pulmonary oedema [Not Recovered/Not Resolved]
  - Dyspnoea [Not Recovered/Not Resolved]

NARRATIVE: CASE EVENT DATE: 20180201
